FAERS Safety Report 4430867-2 (Version None)
Quarter: 2004Q3

REPORT INFORMATION
  Report Type: 
  Country: None (occurrence: None)
  Receive Date: 20040823
  Receipt Date: 20040803
  Transmission Date: 20050211
  Serious: Yes (Hospitalization, Disabling, Other)
  Sender: FDA-Public Use
  Company Number: GB-GLAXOSMITHKLINE-B0341502A

PATIENT
  Age: 63 Year
  Sex: Male
  Weight: 82 kg

DRUGS (2)
  1. AVODART [Suspect]
     Indication: BENIGN PROSTATIC HYPERPLASIA
     Dosage: 500MCG PER DAY
     Route: 048
     Dates: start: 20040708, end: 20040802
  2. CO-CODAMOL [Concomitant]

REACTIONS (3)
  - DYSPNOEA [None]
  - JAUNDICE [None]
  - LIVER FUNCTION TEST ABNORMAL [None]
